FAERS Safety Report 9343214 (Version 2)
Quarter: 2014Q3

REPORT INFORMATION
  Report Type: Report from Study
  Country: US (occurrence: US)
  Receive Date: 20130611
  Receipt Date: 20140812
  Transmission Date: 20150326
  Serious: Yes (Hospitalization, Other)
  Sender: FDA-Public Use
  Company Number: US-ASTRAZENECA-2010SE42830

PATIENT
  Age: 82 Year
  Sex: Female
  Weight: 79.4 kg

DRUGS (28)
  1. CRESTOR [Suspect]
     Active Substance: ROSUVASTATIN CALCIUM
     Indication: BLOOD CHOLESTEROL INCREASED
     Dosage: ONCE DAILY
     Route: 048
  2. AMIODERONE [Concomitant]
     Indication: ATRIAL FIBRILLATION
  3. SENEKOT [Concomitant]
     Indication: FAECES HARD
  4. MULTIVITAMIN [Concomitant]
     Active Substance: VITAMINS
  5. NEXIUM [Suspect]
     Active Substance: ESOMEPRAZOLE MAGNESIUM
     Indication: GASTROOESOPHAGEAL REFLUX DISEASE
     Route: 048
     Dates: start: 2008
  6. CRESTOR [Suspect]
     Active Substance: ROSUVASTATIN CALCIUM
     Indication: BLOOD CHOLESTEROL INCREASED
     Route: 048
  7. TORSEMIDE. [Concomitant]
     Active Substance: TORSEMIDE
     Indication: DIURETIC THERAPY
     Dosage: 10 OR 20 MG
  8. TORSEMIDE. [Concomitant]
     Active Substance: TORSEMIDE
     Indication: BLADDER DISORDER
     Dosage: 10 OR 20 MG
  9. LYRICA [Concomitant]
     Active Substance: PREGABALIN
     Indication: PAIN
  10. ZEDYA [Concomitant]
     Indication: BLOOD CHOLESTEROL INCREASED
  11. PERCOCET [Concomitant]
     Active Substance: ACETAMINOPHEN\OXYCODONE HYDROCHLORIDE
     Indication: PAIN
     Dosage: 10/325
  12. COQ10 [Concomitant]
     Active Substance: UBIDECARENONE
  13. CRESTOR [Suspect]
     Active Substance: ROSUVASTATIN CALCIUM
     Indication: BLOOD CHOLESTEROL INCREASED
     Route: 048
  14. RADIATION THERAPY [Suspect]
     Active Substance: RADIATION THERAPY
     Route: 065
  15. LEVOTHYROXINE [Concomitant]
     Active Substance: LEVOTHYROXINE
     Indication: THYROID DISORDER
  16. MIRILAX [Concomitant]
     Indication: FAECES HARD
  17. TOPROL XL [Suspect]
     Active Substance: METOPROLOL SUCCINATE
     Indication: CORONARY ARTERIAL STENT INSERTION
     Route: 048
     Dates: end: 201305
  18. ZYRTEC [Concomitant]
     Active Substance: CETIRIZINE HYDROCHLORIDE
     Indication: MULTIPLE ALLERGIES
  19. AMIODERONE [Concomitant]
     Indication: ATRIAL FIBRILLATION
  20. ISOSORBIDE [Concomitant]
     Active Substance: ISOSORBIDE
     Indication: CARDIAC DISORDER
  21. FENTANYL. [Concomitant]
     Active Substance: FENTANYL
     Indication: CANCER PAIN
  22. LYRICA [Concomitant]
     Active Substance: PREGABALIN
     Indication: MUSCLE DISORDER
  23. TENAZAPAM [Concomitant]
     Indication: SLEEP DISORDER
  24. POTASSIUM CHLORIDE. [Concomitant]
     Active Substance: POTASSIUM CHLORIDE
  25. VITAMIN B12 [Concomitant]
     Active Substance: CYANOCOBALAMIN
  26. NEXIUM [Suspect]
     Active Substance: ESOMEPRAZOLE MAGNESIUM
     Indication: GASTROOESOPHAGEAL REFLUX DISEASE
     Dosage: DAILY
     Route: 048
  27. ASPIRIN. [Concomitant]
     Active Substance: ASPIRIN
  28. AMIODERONE [Concomitant]
     Indication: ATRIAL FIBRILLATION

REACTIONS (17)
  - Blood magnesium decreased [Unknown]
  - Chest discomfort [Unknown]
  - Thyroid cancer [Unknown]
  - Blood potassium decreased [Unknown]
  - Hypersensitivity [Unknown]
  - Blood pressure abnormal [Unknown]
  - Intentional product misuse [Unknown]
  - Vomiting [Unknown]
  - Hallucination [Unknown]
  - Atrial fibrillation [Unknown]
  - Breast cancer [Unknown]
  - Malignant peritoneal neoplasm [Unknown]
  - Staphylococcal infection [Unknown]
  - Myalgia [Unknown]
  - Muscle disorder [Unknown]
  - Oesophageal perforation [Unknown]
  - Blood electrolytes decreased [Unknown]

NARRATIVE: CASE EVENT DATE: 201209
